FAERS Safety Report 4838533-6 (Version None)
Quarter: 2005Q4

REPORT INFORMATION
  Report Type: 
  Country: None (occurrence: None)
  Receive Date: 20051123
  Receipt Date: 20051111
  Transmission Date: 20060501
  Serious: Yes (Hospitalization, Other)
  Sender: FDA-Public Use
  Company Number: KII-2005-0019624

PATIENT
  Age: 74 Year
  Sex: Female

DRUGS (9)
  1. OXYCONTIN [Suspect]
     Dosage: ORAL
     Route: 048
  2. OXYCODONE HCL [Suspect]
     Dosage: ORAL
     Route: 048
  3. BENZODIAZEPINE DERIVATIVES () [Suspect]
     Dosage: ORAL
     Route: 048
  4. SSRI () [Suspect]
     Dosage: ORAL
     Route: 048
  5. ANTIPSYCHOTICS () [Suspect]
     Dosage: ORAL
     Route: 048
  6. ANTIDEPRESSANTS () [Suspect]
     Dosage: ORAL
     Route: 048
  7. DOXEPIN (DOXEPIN) [Suspect]
     Dosage: ORAL
     Route: 048
  8. ANTICHOLINERGIC AGENTS () [Suspect]
     Dosage: ORAL
     Route: 048
  9. WARFARIN SODIUM [Suspect]
     Dosage: ORAL
     Route: 048

REACTIONS (14)
  - AGITATION [None]
  - BLOOD BICARBONATE DECREASED [None]
  - BLOOD PH INCREASED [None]
  - BLOOD PRESSURE SYSTOLIC INCREASED [None]
  - BODY TEMPERATURE DECREASED [None]
  - BRADYCARDIA [None]
  - COMA [None]
  - ELECTROCARDIOGRAM QRS COMPLEX PROLONGED [None]
  - HYPOTENSION [None]
  - MULTIPLE DRUG OVERDOSE [None]
  - PCO2 DECREASED [None]
  - PO2 INCREASED [None]
  - PUPIL FIXED [None]
  - TACHYCARDIA [None]
